FAERS Safety Report 10374825 (Version 1)
Quarter: 2014Q3

REPORT INFORMATION
  Report Type: Spontaneous
  Country: US (occurrence: US)
  Receive Date: 20140811
  Receipt Date: 20140811
  Transmission Date: 20150326
  Serious: Yes (Hospitalization, Other)
  Sender: FDA-Public Use
  Company Number: US-PAR PHARMACEUTICAL, INC-2014SCPR009313

PATIENT

DRUGS (4)
  1. KETALAR [Suspect]
     Active Substance: KETAMINE HYDROCHLORIDE
     Indication: STATUS ASTHMATICUS
     Dosage: UNK, UNKNOWN
     Route: 065
  2. PARALYTICS [Suspect]
     Active Substance: UNSPECIFIED INGREDIENT
     Indication: STATUS ASTHMATICUS
     Dosage: UNK, UNKNOWN
     Route: 065
  3. BRONCHODILATOR [Suspect]
     Active Substance: UNSPECIFIED INGREDIENT
     Indication: STATUS ASTHMATICUS
     Dosage: UNK, UNKNOWN
     Route: 065
  4. CORTICOSTEROIDS [Suspect]
     Active Substance: CORTICOSTEROID NOS
     Indication: STATUS ASTHMATICUS
     Dosage: UNK, UNKNOWN

REACTIONS (10)
  - Drug ineffective for unapproved indication [Unknown]
  - General physical health deterioration [None]
  - Polyneuropathy [Unknown]
  - Tachycardia [None]
  - Status asthmaticus [Recovering/Resolving]
  - Hypoventilation [None]
  - Haemodynamic instability [None]
  - Condition aggravated [Recovering/Resolving]
  - Tracheostomy [None]
  - Respiratory acidosis [None]
